FAERS Safety Report 23736150 (Version 1)
Quarter: 2024Q2

REPORT INFORMATION
  Report Type: Spontaneous
  Country: FR (occurrence: FR)
  Receive Date: 20240412
  Receipt Date: 20240412
  Transmission Date: 20240716
  Serious: Yes (Other)
  Sender: FDA-Public Use
  Company Number: FR-SA-2024SA110768

PATIENT
  Age: 74 Year
  Sex: Male

DRUGS (8)
  1. ELOCTA [Suspect]
     Active Substance: EFMOROCTOCOG ALFA
     Indication: Factor VIII deficiency
     Dosage: 1000 IU BEFORE THE PROCEDURE
     Route: 065
     Dates: start: 202402, end: 20240229
  2. ELOCTA [Suspect]
     Active Substance: EFMOROCTOCOG ALFA
     Indication: Factor VIII deficiency
     Dosage: 1000 IU BEFORE THE PROCEDURE
     Route: 065
     Dates: start: 202402, end: 20240229
  3. ELOCTA [Suspect]
     Active Substance: EFMOROCTOCOG ALFA
     Dosage: 500 IU, QD FOR ANOTHER WEEK.
     Route: 065
     Dates: start: 202403, end: 202403
  4. ELOCTA [Suspect]
     Active Substance: EFMOROCTOCOG ALFA
     Dosage: 500 IU, QD FOR ANOTHER WEEK.
     Route: 065
     Dates: start: 202403, end: 202403
  5. ELOCTA [Suspect]
     Active Substance: EFMOROCTOCOG ALFA
     Dosage: 1000 IU (D21) BEFORE EACH DIALYSIS FOR A WEEK
     Route: 065
     Dates: start: 20240308, end: 20240308
  6. ELOCTA [Suspect]
     Active Substance: EFMOROCTOCOG ALFA
     Dosage: 1000 IU (D21) BEFORE EACH DIALYSIS FOR A WEEK
     Route: 065
     Dates: start: 20240308, end: 20240308
  7. ELOCTA [Suspect]
     Active Substance: EFMOROCTOCOG ALFA
     Dosage: 500 IU (INITIAL PROTOCOL OF 500 IU ELOCTA BEFORE EACH DIALYSIS SESSION ON FAV IS REPEATED ON D22 OF
     Route: 065
     Dates: start: 20240318
  8. ELOCTA [Suspect]
     Active Substance: EFMOROCTOCOG ALFA
     Dosage: 500 IU (INITIAL PROTOCOL OF 500 IU ELOCTA BEFORE EACH DIALYSIS SESSION ON FAV IS REPEATED ON D22 OF
     Route: 065
     Dates: start: 20240318

REACTIONS (4)
  - Rectal haemorrhage [Recovered/Resolved]
  - Prostate cancer metastatic [Unknown]
  - Catheter site haemorrhage [Unknown]
  - Post procedural haematoma [Unknown]

NARRATIVE: CASE EVENT DATE: 20240101
